FAERS Safety Report 21177631 (Version 2)
Quarter: 2022Q3

REPORT INFORMATION
  Report Type: Report from Study
  Country: MX (occurrence: None)
  Receive Date: 20220805
  Receipt Date: 20220805
  Transmission Date: 20221027
  Serious: Yes (Life-Threatening, Hospitalization)
  Sender: FDA-Public Use
  Company Number: MX-Eisai Medical Research-EC-2022-119067

PATIENT
  Age: 68 Year
  Sex: Male
  Weight: 80.5 kg

DRUGS (16)
  1. LENVATINIB [Suspect]
     Active Substance: LENVATINIB
     Indication: Clear cell renal cell carcinoma
     Route: 048
     Dates: start: 20220511, end: 20220521
  2. QUAVONLIMAB [Suspect]
     Active Substance: QUAVONLIMAB
     Indication: Clear cell renal cell carcinoma
     Dosage: QUAVONLIMAB (MK-1308A) 25 MG (+) PEMBROLIZUMAB (MK-3475) 400 MG
     Route: 042
     Dates: start: 20220511, end: 20220511
  3. PEMBROLIZUMAB [Suspect]
     Active Substance: PEMBROLIZUMAB
     Dosage: QUAVONLIMAB (MK-1308A) 25 MG (+) PEMBROLIZUMAB (MK-3475) 400 MG
     Route: 042
     Dates: start: 20220622, end: 20220622
  4. ASPIRIN [Concomitant]
     Active Substance: ASPIRIN
     Dates: start: 201406
  5. ATORVASTATIN [Concomitant]
     Active Substance: ATORVASTATIN
     Dates: start: 201406
  6. EZETIMIBE [Concomitant]
     Active Substance: EZETIMIBE
     Dates: start: 201406
  7. AMIODARONE [Concomitant]
     Active Substance: AMIODARONE
     Dates: start: 202202
  8. BISOPROLOL [Concomitant]
     Active Substance: BISOPROLOL
     Dates: start: 20220523
  9. PANTOPRAZOLE [Concomitant]
     Active Substance: PANTOPRAZOLE
     Dates: start: 20220314
  10. QUETIAPINE FUMARATE [Concomitant]
     Active Substance: QUETIAPINE FUMARATE
     Dates: start: 20220314
  11. TRAMADOL HYDROCHLORIDE [Concomitant]
     Active Substance: TRAMADOL HYDROCHLORIDE
     Dates: start: 20220510
  12. ACETAMINOPHEN [Concomitant]
     Active Substance: ACETAMINOPHEN
     Dates: start: 20220501
  13. CHLORTHALIDONE [Concomitant]
     Active Substance: CHLORTHALIDONE
     Dates: start: 20220513
  14. NIFEDIPINE [Concomitant]
     Active Substance: NIFEDIPINE
     Dates: start: 20220531
  15. AZILSARTAN KAMEDOXOMIL [Concomitant]
     Active Substance: AZILSARTAN KAMEDOXOMIL
     Dates: start: 20220614
  16. SPIRONOLACTONE [Concomitant]
     Active Substance: SPIRONOLACTONE
     Dates: start: 20220531

REACTIONS (2)
  - Diarrhoea [Recovered/Resolved]
  - Colitis [Unknown]

NARRATIVE: CASE EVENT DATE: 20220628
